FAERS Safety Report 5960110-4 (Version None)
Quarter: 2008Q4

REPORT INFORMATION
  Report Type: 
  Country: None (occurrence: None)
  Receive Date: 20081120
  Receipt Date: 20081110
  Transmission Date: 20090506
  Serious: Yes (Other)
  Sender: FDA-Public Use
  Company Number: ES-CELGENEUS-144-20785-08110494

PATIENT
  Sex: Male
  Weight: 83 kg

DRUGS (1)
  1. THALIDOMIDE [Suspect]
     Indication: MYELOFIBROSIS
     Route: 048
     Dates: start: 20061101

REACTIONS (1)
  - PULMONARY TOXICITY [None]
